FAERS Safety Report 14183165 (Version 1)
Quarter: 2017Q4

REPORT INFORMATION
  Report Type: Spontaneous
  Country: SE (occurrence: SE)
  Receive Date: 20171113
  Receipt Date: 20171113
  Transmission Date: 20180321
  Serious: Yes (Hospitalization, Other)
  Sender: FDA-Public Use
  Company Number: SE-TEVA-824405ISR

PATIENT
  Age: 16 Year
  Sex: Male

DRUGS (1)
  1. RISPERIDON [Suspect]
     Active Substance: RISPERIDONE
     Dosage: A FEW MG/DAY
     Route: 048

REACTIONS (3)
  - Toxicity to various agents [Unknown]
  - Intentional overdose [Unknown]
  - Neurological symptom [Unknown]

NARRATIVE: CASE EVENT DATE: 20171105
